FAERS Safety Report 13323774 (Version 1)
Quarter: 2017Q1

REPORT INFORMATION
  Report Type: Spontaneous
  Country: FR (occurrence: FR)
  Receive Date: 20170310
  Receipt Date: 20170310
  Transmission Date: 20170428
  Serious: Yes (Hospitalization, Congenital Anomaly)
  Sender: FDA-Public Use
  Company Number: FR-ASTRAZENECA-2017SE24751

PATIENT
  Age: 1 Day
  Sex: Female
  Weight: 3.4 kg

DRUGS (3)
  1. DETENSIEL [Suspect]
     Active Substance: BISOPROLOL FUMARATE
     Indication: HYPERTENSION
     Route: 064
     Dates: start: 20130806, end: 20140225
  2. LOXEN [Suspect]
     Active Substance: NICARDIPINE HYDROCHLORIDE
     Route: 064
     Dates: start: 20140226, end: 20140417
  3. HYTACAND [Suspect]
     Active Substance: CANDESARTAN CILEXETIL\HYDROCHLOROTHIAZIDE
     Indication: HYPERTENSION
     Route: 064
     Dates: start: 20130806, end: 20140225

REACTIONS (4)
  - Foetal renal imaging abnormal [Recovering/Resolving]
  - Renal failure [Recovering/Resolving]
  - Strabismus [Unknown]
  - Pneumothorax [Recovered/Resolved]

NARRATIVE: CASE EVENT DATE: 20140417
